FAERS Safety Report 19283995 (Version 1)
Quarter: 2021Q2

REPORT INFORMATION
  Report Type: Spontaneous
  Country: FR (occurrence: FR)
  Receive Date: 20210521
  Receipt Date: 20210521
  Transmission Date: 20210717
  Serious: Yes (Hospitalization)
  Sender: FDA-Public Use
  Company Number: NVSC2021FR104726

PATIENT
  Age: 57 Year
  Sex: Female

DRUGS (6)
  1. CEFEPIME [Suspect]
     Active Substance: CEFEPIME HYDROCHLORIDE
     Indication: PERITONITIS
     Dosage: 6 G, QD (2G 3X/J)
     Route: 042
     Dates: start: 20210320, end: 20210324
  2. METRONIDAZOLE B BRAUN [Suspect]
     Active Substance: METRONIDAZOLE
     Indication: PERITONITIS
     Dosage: 1.5 G, QD (500 MG 3X/J)
     Route: 042
     Dates: start: 20210320, end: 20210324
  3. SANDOSTATINE [Suspect]
     Active Substance: OCTREOTIDE ACETATE
  4. LOVENOX [Suspect]
     Active Substance: ENOXAPARIN SODIUM
     Indication: PERITONITIS
     Dosage: 4000 IU, QD
     Route: 059
     Dates: start: 20210317, end: 20210324
  5. SANDOSTATINE [Suspect]
     Active Substance: OCTREOTIDE ACETATE
     Indication: PERITONITIS
     Dosage: 300 UG, QD
     Route: 042
     Dates: start: 20210319, end: 20210324
  6. SANDOSTATINE [Suspect]
     Active Substance: OCTREOTIDE ACETATE

REACTIONS (1)
  - Rash maculo-papular [Recovered/Resolved]

NARRATIVE: CASE EVENT DATE: 20210324
